FAERS Safety Report 7644869-6 (Version None)
Quarter: 2011Q3

REPORT INFORMATION
  Report Type: 
  Country: None (occurrence: None)
  Receive Date: 20110725
  Receipt Date: 20110711
  Transmission Date: 20111222
  Serious: Yes (Hospitalization)
  Sender: FDA-Public Use
  Company Number: 2011P1007731

PATIENT
  Age: 56 Year
  Sex: Female

DRUGS (7)
  1. FENTANYL [Suspect]
     Dosage: 25 MCG/HR, Q72H; TDER
     Route: 062
     Dates: start: 20030101, end: 20070101
  2. FENTANYL [Suspect]
     Dosage: 25 MCG/HR, Q72H; TDER
     Route: 062
     Dates: start: 20110401, end: 20110601
  3. FENTANYL [Suspect]
     Indication: INTERVERTEBRAL DISC PROTRUSION
     Dosage: 50 MCG/HR; Q72H; TDER
     Route: 062
     Dates: start: 20070101, end: 20110401
  4. FENTANYL [Suspect]
     Indication: INTERVERTEBRAL DISC PROTRUSION
     Dosage: 50 MCG/HR; Q72H; TDER
     Route: 062
     Dates: start: 20110601
  5. RIBAVIRIN [Concomitant]
  6. PEGASYS [Concomitant]
  7. CORTISONE PREPARATION [Concomitant]

REACTIONS (6)
  - CONDITION AGGRAVATED [None]
  - PRODUCT ADHESION ISSUE [None]
  - ANAEMIA [None]
  - SEPSIS [None]
  - COLITIS [None]
  - NECK PAIN [None]
